FAERS Safety Report 12924997 (Version 2)
Quarter: 2017Q1

REPORT INFORMATION
  Report Type: Spontaneous
  Country: US (occurrence: US)
  Receive Date: 20161108
  Receipt Date: 20170324
  Transmission Date: 20170428
  Serious: Yes (Other)
  Sender: FDA-Public Use
  Company Number: US-TEVA-710533USA

PATIENT
  Age: 68 Year
  Sex: Female
  Weight: 95.34 kg

DRUGS (3)
  1. OMEPRAZOLE. [Concomitant]
     Active Substance: OMEPRAZOLE
  2. RALOXIFENE. [Concomitant]
     Active Substance: RALOXIFENE
  3. VENLAFAXINE [Suspect]
     Active Substance: VENLAFAXINE HYDROCHLORIDE
     Route: 065
     Dates: start: 201510, end: 201609

REACTIONS (7)
  - Dysarthria [Recovering/Resolving]
  - Slow speech [Recovering/Resolving]
  - Dysphagia [Recovering/Resolving]
  - Slow speech [Not Recovered/Not Resolved]
  - Mastication disorder [Unknown]
  - Swollen tongue [Recovering/Resolving]
  - Dysarthria [Not Recovered/Not Resolved]

NARRATIVE: CASE EVENT DATE: 201602
